FAERS Safety Report 10206973 (Version 1)
Quarter: 2014Q2

REPORT INFORMATION
  Report Type: Spontaneous
  Country: US (occurrence: None)
  Receive Date: 20140527
  Receipt Date: 20140527
  Transmission Date: 20141212
  Serious: Yes (Hospitalization)
  Sender: FDA-Public Use
  Company Number: UNT-2014-000501

PATIENT
  Age: 63 Year
  Sex: Female
  Weight: 117.9 kg

DRUGS (2)
  1. REMODULIN [Suspect]
     Indication: PULMONARY ARTERIAL HYPERTENSION
     Route: 058
     Dates: start: 20110707
  2. COUMADIN (WARFARIN SODIUM) [Concomitant]

REACTIONS (1)
  - Chest pain [None]
